FAERS Safety Report 12440974 (Version 1)
Quarter: 2016Q2

REPORT INFORMATION
  Report Type: Report from Study
  Country: CA (occurrence: CA)
  Receive Date: 20160607
  Receipt Date: 20160607
  Transmission Date: 20160815
  Serious: Yes (Other)
  Sender: FDA-Public Use
  Company Number: CA-AMGEN-CANSL2016070546

PATIENT
  Sex: Female

DRUGS (4)
  1. ALENDRONATE [Concomitant]
     Active Substance: ALENDRONATE SODIUM
  2. PROLIA [Suspect]
     Active Substance: DENOSUMAB
     Indication: PRODUCT USED FOR UNKNOWN INDICATION
     Dosage: 60 MG/ML, UNK
     Route: 065
  3. VITAMIN D [Concomitant]
     Active Substance: CHOLECALCIFEROL
  4. VITAMINS [Concomitant]
     Active Substance: VITAMINS

REACTIONS (5)
  - Muscle spasms [Unknown]
  - Faeces discoloured [Unknown]
  - Abdominal distension [Unknown]
  - Chronic kidney disease [Unknown]
  - Chromaturia [Unknown]
